FAERS Safety Report 19992064 (Version 1)
Quarter: 2021Q4

REPORT INFORMATION
  Report Type: Spontaneous
  Country: GB (occurrence: GB)
  Receive Date: 20211025
  Receipt Date: 20211025
  Transmission Date: 20220303
  Serious: Yes (Hospitalization, Other)
  Sender: FDA-Public Use
  Company Number: GB-AMGEN-GBRSP2021161721

PATIENT

DRUGS (2)
  1. CINACALCET HYDROCHLORIDE [Suspect]
     Active Substance: CINACALCET HYDROCHLORIDE
     Indication: Hyperparathyroidism primary
     Dosage: 30 MILLIGRAM, QD
     Route: 065
  2. CINACALCET HYDROCHLORIDE [Suspect]
     Active Substance: CINACALCET HYDROCHLORIDE
     Indication: Hypercalcaemia
     Dosage: 60 MILLIGRAM, QD
     Route: 065

REACTIONS (17)
  - Hypocalcaemia [Unknown]
  - Hypercalcaemia [Unknown]
  - Diabetes insipidus [Unknown]
  - Drug intolerance [Unknown]
  - Therapeutic product effect incomplete [Unknown]
  - Nausea [Unknown]
  - Vomiting [Unknown]
  - Headache [Unknown]
  - Treatment noncompliance [Unknown]
  - Adverse reaction [Unknown]
  - Muscular weakness [Unknown]
  - Bone pain [Unknown]
  - Lethargy [Unknown]
  - Confusional state [Unknown]
  - Constipation [Unknown]
  - Fatigue [Unknown]
  - Myalgia [Unknown]
